FAERS Safety Report 5073263-X (Version None)
Quarter: 2006Q3

REPORT INFORMATION
  Report Type: 
  Country: None (occurrence: None)
  Receive Date: 20060808
  Receipt Date: 20060625
  Transmission Date: 20061208
  Serious: Yes (Life-Threatening, Other)
  Sender: FDA-Public Use
  Company Number: PHBS2006CN11491

PATIENT
  Age: 61 Year
  Sex: Female

DRUGS (1)
  1. TEGRETOL [Suspect]
     Indication: NEURITIS
     Dosage: 200 MG, BID
     Route: 048
     Dates: start: 20060515, end: 20060528

REACTIONS (10)
  - BLISTER [None]
  - DRUG ERUPTION [None]
  - ERYTHEMA [None]
  - MUCOSAL HAEMORRHAGE [None]
  - PLATELET COUNT DECREASED [None]
  - PYREXIA [None]
  - RASH PAPULAR [None]
  - RESPIRATORY TRACT HAEMORRHAGE [None]
  - SKIN HYPERPIGMENTATION [None]
  - ULCER [None]
